FAERS Safety Report 23512625 (Version 1)
Quarter: 2024Q1

REPORT INFORMATION
  Report Type: Spontaneous
  Country: IT (occurrence: IT)
  Receive Date: 20240212
  Receipt Date: 20240212
  Transmission Date: 20240409
  Serious: Yes (Other)
  Sender: FDA-Public Use
  Company Number: None

PATIENT
  Age: 70 Year
  Sex: Female

DRUGS (4)
  1. CYCLOPHOSPHAMIDE [Suspect]
     Active Substance: CYCLOPHOSPHAMIDE
     Indication: Breast cancer
     Dosage: 990 MG
     Route: 042
     Dates: start: 202307, end: 202309
  2. EPIRUBICIN [Suspect]
     Active Substance: EPIRUBICIN
     Indication: Leukopenia
     Dosage: 140 MG
     Route: 042
     Dates: start: 202307, end: 202309
  3. FILGRASTIM [Suspect]
     Active Substance: FILGRASTIM
     Indication: Product used for unknown indication
     Dosage: UNK
     Route: 042
     Dates: start: 20230724, end: 20230801
  4. CORTISONE [Concomitant]
     Active Substance: CORTISONE
     Indication: Breast neoplasm
     Dosage: UNK
     Route: 065
     Dates: start: 202307

REACTIONS (6)
  - Leukopenia [Recovered/Resolved]
  - Flushing [Recovered/Resolved]
  - Varicose vein [Recovered/Resolved]
  - Infusion related reaction [Recovered/Resolved]
  - Taste disorder [Recovered/Resolved]
  - Alopecia [Recovering/Resolving]

NARRATIVE: CASE EVENT DATE: 20230701
